FAERS Safety Report 4415684-1 (Version None)
Quarter: 2004Q2

REPORT INFORMATION
  Report Type: 
  Country: None (occurrence: None)
  Receive Date: 20040628
  Receipt Date: 20040126
  Transmission Date: 20050107
  Serious: Yes (Other)
  Sender: FDA-Public Use
  Company Number: 357494

PATIENT
  Age: 58 Year
  Sex: Male

DRUGS (3)
  1. CELLCEPT [Suspect]
     Indication: RENAL TRANSPLANT
     Dosage: 1 GRAM 2 PER DAY ORAL
     Route: 048
     Dates: start: 20020815
  2. PROGRAF [Suspect]
     Indication: RENAL TRANSPLANT
     Dosage: ORAL
     Route: 048
  3. PREDNISONE [Concomitant]

REACTIONS (2)
  - TRANSPLANT REJECTION [None]
  - TREATMENT NONCOMPLIANCE [None]
